FAERS Safety Report 20725186 (Version 3)
Quarter: 2022Q3

REPORT INFORMATION
  Report Type: Spontaneous
  Country: US (occurrence: US)
  Receive Date: 20220419
  Receipt Date: 20220913
  Transmission Date: 20221027
  Serious: Yes (Other)
  Sender: FDA-Public Use
  Company Number: US-HERON THERAPEUTICS, INC-HRTX-2022-000779

PATIENT
  Age: 75 Year
  Sex: Male

DRUGS (4)
  1. ZYNRELEF [Suspect]
     Active Substance: BUPIVACAINE\MELOXICAM
     Indication: Postoperative analgesia
     Dosage: UNK
     Route: 026
     Dates: start: 20220315
  2. DEVICE [Concomitant]
     Active Substance: DEVICE
     Indication: Haemostasis
     Dosage: 20 MILLIGRAM
     Route: 061
  3. VANCOMYCIN [Concomitant]
     Active Substance: VANCOMYCIN
     Indication: Product used for unknown indication
     Dosage: 1 GRAM, POWDER
     Route: 065
  4. LOSARTAN [Concomitant]
     Active Substance: LOSARTAN
     Indication: Hypertension
     Dosage: 50 MILLIGRAM, QD
     Route: 048

REACTIONS (4)
  - Respiratory arrest [Recovered/Resolved]
  - Pneumonia aspiration [Recovering/Resolving]
  - Pain [Recovering/Resolving]
  - Overdose [Unknown]

NARRATIVE: CASE EVENT DATE: 20220315
